FAERS Safety Report 7761239-0 (Version None)
Quarter: 2011Q3

REPORT INFORMATION
  Report Type: 
  Country: None (occurrence: None)
  Receive Date: 20110920
  Receipt Date: 20110908
  Transmission Date: 20111222
  Serious: Yes (Other)
  Sender: FDA-Public Use
  Company Number: FR-JNJFOC-20110904375

PATIENT
  Sex: Female
  Weight: 40.6 kg

DRUGS (3)
  1. PREDNISONE [Concomitant]
  2. ANTIBIOTICS [Concomitant]
     Indication: CROHN'S DISEASE
  3. REMICADE [Suspect]
     Indication: CROHN'S DISEASE
     Route: 042
     Dates: start: 20090123

REACTIONS (2)
  - PROCTALGIA [None]
  - RECTAL DISCHARGE [None]
